FAERS Safety Report 22333019 (Version 7)
Quarter: 2023Q4

REPORT INFORMATION
  Report Type: Spontaneous
  Country: US (occurrence: US)
  Receive Date: 20230517
  Receipt Date: 20231212
  Transmission Date: 20240110
  Serious: Yes (Other)
  Sender: FDA-Public Use
  Company Number: US-PFIZER INC-PV202300086030

PATIENT
  Age: 65 Year
  Sex: Female

DRUGS (2)
  1. BRAFTOVI [Suspect]
     Active Substance: ENCORAFENIB
     Dosage: 75 MG
  2. BRAFTOVI [Suspect]
     Active Substance: ENCORAFENIB
     Dosage: 300 MG, DAILY (TAKE 4 CAPS DAILY)
     Route: 048

REACTIONS (12)
  - Ileostomy [Unknown]
  - Chest injury [Unknown]
  - Leukaemia [Unknown]
  - Plasma cell myeloma [Unknown]
  - Rectal cancer [Unknown]
  - Malaise [Unknown]
  - Blood cholesterol increased [Unknown]
  - Asthenia [Unknown]
  - Bradykinesia [Unknown]
  - Tachycardia [Unknown]
  - Low anterior resection syndrome [Unknown]
  - Blood triglycerides increased [Unknown]
